FAERS Safety Report 19052932 (Version 1)
Quarter: 2021Q1

REPORT INFORMATION
  Report Type: Spontaneous
  Country: US (occurrence: US)
  Receive Date: 20210324
  Receipt Date: 20210324
  Transmission Date: 20210420
  Serious: Yes (Other)
  Sender: FDA-Public Use
  Company Number: US-GW PHARMA-202103USGW01222

PATIENT

DRUGS (1)
  1. EPIDIOLEX [Suspect]
     Active Substance: CANNABIDIOL
     Indication: EPILEPSY
     Dosage: 350 MILLIGRAM, BID (FIRST SHIPPED: 24 OCT 2019)
     Route: 048
     Dates: start: 201910

REACTIONS (3)
  - Product dose omission issue [Unknown]
  - Insurance issue [Unknown]
  - Generalised tonic-clonic seizure [Unknown]
